FAERS Safety Report 11660446 (Version 2)
Quarter: 2015Q4

REPORT INFORMATION
  Report Type: Spontaneous
  Country: US (occurrence: US)
  Receive Date: 20151026
  Receipt Date: 20151217
  Transmission Date: 20160304
  Serious: Yes (Other)
  Sender: FDA-Public Use
  Company Number: PHEH2015US020864

PATIENT

DRUGS (1)
  1. COARTEM [Suspect]
     Active Substance: ARTEMETHER\LUMEFANTRINE
     Indication: PRODUCT USED FOR UNKNOWN INDICATION
     Dosage: UNKOWN DOSE (20 MG ARTEMETHER/120 MG BENFLUMETOL)
     Route: 065

REACTIONS (2)
  - Local swelling [Unknown]
  - Swelling face [Unknown]
